FAERS Safety Report 8457834-6 (Version None)
Quarter: 2012Q2

REPORT INFORMATION
  Report Type: 
  Country: None (occurrence: None)
  Receive Date: 20120323
  Receipt Date: 20111011
  Transmission Date: 20120825
  Serious: Yes (Hospitalization)
  Sender: FDA-Public Use
  Company Number: 163-21880-11081587

PATIENT
  Age: 65 Year
  Sex: Male
  Weight: 101.6057 kg

DRUGS (4)
  1. REVLIMID [Suspect]
     Indication: MULTIPLE MYELOMA
     Dosage: 15 MG, 1 IN 1 D, PO; 10 MG, 1 IN 1 D, PO; 10 MG, AT 1/2 FREQUENCY, PO
     Route: 048
     Dates: start: 20110804, end: 20110812
  2. REVLIMID [Suspect]
     Indication: MULTIPLE MYELOMA
     Dosage: 15 MG, 1 IN 1 D, PO; 10 MG, 1 IN 1 D, PO; 10 MG, AT 1/2 FREQUENCY, PO
     Route: 048
     Dates: start: 20110823
  3. REVLIMID [Suspect]
     Indication: MULTIPLE MYELOMA
     Dosage: 15 MG, 1 IN 1 D, PO; 10 MG, 1 IN 1 D, PO; 10 MG, AT 1/2 FREQUENCY, PO
     Route: 048
     Dates: start: 20100801
  4. SYNVISC (HYALURONATE SODIUM) [Concomitant]

REACTIONS (3)
  - RASH [None]
  - PRURITUS [None]
  - URTICARIA [None]
